FAERS Safety Report 22098475 (Version 1)
Quarter: 2023Q1

REPORT INFORMATION
  Report Type: Spontaneous
  Country: US (occurrence: US)
  Receive Date: 20230315
  Receipt Date: 20230315
  Transmission Date: 20230418
  Serious: Yes (Other)
  Sender: FDA-Public Use
  Company Number: US-AMGEN-USASP2023044879

PATIENT
  Sex: Female

DRUGS (1)
  1. OTEZLA [Suspect]
     Active Substance: APREMILAST
     Indication: Psoriasis
     Dosage: 30 MILLIGRAM
     Route: 065

REACTIONS (4)
  - Foreign body in throat [Unknown]
  - COVID-19 [Unknown]
  - Oropharyngeal discomfort [Unknown]
  - Psoriasis [Not Recovered/Not Resolved]
